FAERS Safety Report 6590672-8 (Version None)
Quarter: 2010Q1

REPORT INFORMATION
  Report Type: 
  Country: None (occurrence: None)
  Receive Date: 20100219
  Receipt Date: 20100211
  Transmission Date: 20100710
  Serious: Yes (Hospitalization)
  Sender: FDA-Public Use
  Company Number: B0631439A

PATIENT
  Sex: Female

DRUGS (5)
  1. LEXIVA [Suspect]
     Indication: HIV INFECTION
     Dosage: 1400MGD PER DAY
     Route: 048
     Dates: start: 20081001, end: 20090901
  2. COMBIVIR [Suspect]
     Indication: HIV INFECTION
     Dosage: 2TAB PER DAY
     Route: 048
     Dates: start: 20090920
  3. LEXIVA [Suspect]
     Dosage: 1400MGD PER DAY
     Route: 048
     Dates: start: 20090920
  4. NORVIR [Suspect]
     Indication: HIV INFECTION
     Route: 065
     Dates: start: 20090920
  5. KALETRA [Suspect]
     Indication: HIV INFECTION
     Dosage: 4TAB PER DAY
     Route: 048
     Dates: start: 20090901, end: 20091001

REACTIONS (3)
  - DRUG EXPOSURE DURING PREGNANCY [None]
  - PRE-ECLAMPSIA [None]
  - PREMATURE BABY [None]
